FAERS Safety Report 10144538 (Version 1)
Quarter: 2014Q2

REPORT INFORMATION
  Report Type: Spontaneous
  Country: US (occurrence: US)
  Receive Date: 20140430
  Receipt Date: 20140430
  Transmission Date: 20141212
  Serious: No
  Sender: FDA-Public Use
  Company Number: US-SANOFI-AVENTIS-2013SA041049

PATIENT
  Age: 62 Year
  Sex: Female
  Weight: 145 kg

DRUGS (8)
  1. LOVENOX [Suspect]
     Indication: PULMONARY EMBOLISM
     Route: 065
     Dates: start: 20130322, end: 20130322
  2. LOVENOX [Suspect]
     Indication: PULMONARY EMBOLISM
     Route: 065
     Dates: start: 20130520
  3. HEPARIN [Concomitant]
  4. SYNTHROID [Concomitant]
     Indication: AUTOIMMUNE THYROIDITIS
     Dates: start: 2002
  5. CELEBREX [Concomitant]
     Indication: INFLAMMATION
     Dates: start: 1991
  6. METFORMIN [Concomitant]
     Indication: BLOOD GLUCOSE
     Dates: start: 1991
  7. JANUVIA [Concomitant]
     Indication: BLOOD GLUCOSE
     Dates: start: 2011
  8. VICTOZA [Concomitant]
     Indication: BLOOD GLUCOSE
     Dates: start: 2011

REACTIONS (3)
  - Contusion [Unknown]
  - Injection site mass [Unknown]
  - Injection site bruising [Not Recovered/Not Resolved]
